FAERS Safety Report 11275331 (Version 1)
Quarter: 2015Q3

REPORT INFORMATION
  Report Type: Spontaneous
  Country: US (occurrence: US)
  Receive Date: 20150716
  Receipt Date: 20150716
  Transmission Date: 20151125
  Serious: No
  Sender: FDA-Public Use
  Company Number: US-DRREDDYS-USA/USA/15/0048784

PATIENT
  Age: 27 Year
  Sex: Female

DRUGS (1)
  1. ZENATANE [Suspect]
     Active Substance: ISOTRETINOIN
     Indication: ACNE CYSTIC
     Route: 048
     Dates: start: 20150227, end: 20150511

REACTIONS (2)
  - Blood triglycerides increased [Recovering/Resolving]
  - Alanine aminotransferase increased [Recovering/Resolving]

NARRATIVE: CASE EVENT DATE: 20150511
